FAERS Safety Report 15208573 (Version 2)
Quarter: 2018Q3

REPORT INFORMATION
  Report Type: Spontaneous
  Country: BA (occurrence: BA)
  Receive Date: 20180727
  Receipt Date: 20180801
  Transmission Date: 20181010
  Serious: Yes (Death)
  Sender: FDA-Public Use
  Company Number: BA-PFIZER INC-2018301195

PATIENT
  Age: 78 Year
  Sex: Male

DRUGS (2)
  1. CONTROLOC [Concomitant]
     Active Substance: PANTOPRAZOLE SODIUM
     Indication: PROPHYLAXIS
  2. FRAGMIN [Suspect]
     Active Substance: DALTEPARIN SODIUM
     Indication: THROMBOSIS PROPHYLAXIS
     Dosage: 2500 IU,
     Route: 058
     Dates: start: 20180716

REACTIONS (2)
  - Gastrointestinal haemorrhage [Fatal]
  - Haematocrit decreased [Fatal]

NARRATIVE: CASE EVENT DATE: 20180721
